FAERS Safety Report 7897298-4 (Version None)
Quarter: 2011Q4

REPORT INFORMATION
  Report Type: 
  Country: None (occurrence: None)
  Receive Date: 20111107
  Receipt Date: 20111101
  Transmission Date: 20120403
  Serious: Yes (Other)
  Sender: FDA-Public Use
  Company Number: PHHY2010CA36414

PATIENT
  Sex: Female

DRUGS (2)
  1. ZOLEDRONOC ACID [Suspect]
     Dosage: UNK
     Route: 042
     Dates: start: 20100715
  2. ZOLEDRONOC ACID [Suspect]
     Indication: OSTEOPOROSIS
     Dosage: UNK
     Route: 042
     Dates: start: 20090706

REACTIONS (8)
  - LOSS OF CONSCIOUSNESS [None]
  - FEELING ABNORMAL [None]
  - PAIN IN EXTREMITY [None]
  - FALL [None]
  - NEURALGIA [None]
  - BONE PAIN [None]
  - SOMNOLENCE [None]
  - ASTHENIA [None]
